FAERS Safety Report 21269257 (Version 1)
Quarter: 2022Q3

REPORT INFORMATION
  Report Type: Spontaneous
  Country: US (occurrence: US)
  Receive Date: 20220830
  Receipt Date: 20220830
  Transmission Date: 20221027
  Serious: Yes (Hospitalization)
  Sender: FDA-Public Use
  Company Number: US-BRISTOL-MYERS SQUIBB COMPANY-2022-094578

PATIENT
  Age: 81 Year
  Sex: Female
  Weight: 68.95 kg

DRUGS (3)
  1. INREBIC [Suspect]
     Active Substance: FEDRATINIB HYDROCHLORIDE
     Indication: Myelofibrosis
     Route: 048
     Dates: start: 20220722
  2. INREBIC [Suspect]
     Active Substance: FEDRATINIB HYDROCHLORIDE
     Route: 048
  3. JAKAFI [Suspect]
     Active Substance: RUXOLITINIB
     Indication: Product used for unknown indication
     Route: 065

REACTIONS (5)
  - Heart rate decreased [Unknown]
  - Diarrhoea [Recovering/Resolving]
  - Haemoglobin decreased [Unknown]
  - Peripheral swelling [Unknown]
  - Abdominal distension [Recovering/Resolving]

NARRATIVE: CASE EVENT DATE: 20220810
